FAERS Safety Report 25868031 (Version 3)
Quarter: 2025Q4

REPORT INFORMATION
  Report Type: Report from Study
  Country: US (occurrence: US)
  Receive Date: 20251001
  Receipt Date: 20251117
  Transmission Date: 20260117
  Serious: Yes (Other)
  Sender: ABBVIE
  Company Number: US-ABBVIE-6481462

PATIENT
  Age: 64 Year
  Sex: Male

DRUGS (2)
  1. SKYRIZI [Suspect]
     Active Substance: RISANKIZUMAB-RZAA
     Indication: Psoriasis
     Dosage: FORM STRENGTH: 150 MILLIGRAMS
     Route: 058
     Dates: start: 202410
  2. SKYRIZI [Suspect]
     Active Substance: RISANKIZUMAB-RZAA
     Route: 058
     Dates: start: 2025

REACTIONS (9)
  - Procedural pain [Not Recovered/Not Resolved]
  - Tonsillectomy [Recovering/Resolving]
  - Metastatic neoplasm [Recovering/Resolving]
  - Lymphadenopathy [Recovering/Resolving]
  - Metastatic lymphoma [Recovering/Resolving]
  - Procedural pain [Not Recovered/Not Resolved]
  - Neck dissection [Unknown]
  - Neck pain [Not Recovered/Not Resolved]
  - Neuralgia [Not Recovered/Not Resolved]

NARRATIVE: CASE EVENT DATE: 20250101
